FAERS Safety Report 9281357 (Version 2)
Quarter: 2014Q1

REPORT INFORMATION
  Report Type: Report from Study
  Country: JP (occurrence: JP)
  Receive Date: 20130509
  Receipt Date: 20140212
  Transmission Date: 20141002
  Serious: Yes (Other)
  Sender: FDA-Public Use
  Company Number: JP-VERTEX PHARMACEUTICALS INC-AE-2012-010607

PATIENT
  Age: 65 Year
  Sex: Female

DRUGS (20)
  1. VX-950 (TELAPREVIR) [Suspect]
     Indication: CHRONIC HEPATITIS C
     Dosage: 1500 MG, QD
     Route: 048
     Dates: start: 20120710, end: 20120715
  2. VX-950 (TELAPREVIR) [Suspect]
     Dosage: 1000 MG, QD
     Route: 048
     Dates: start: 20120716, end: 20120807
  3. VX-950 (TELAPREVIR) [Suspect]
     Dosage: 1500 MG, QD
     Route: 048
     Dates: start: 20120808, end: 20120809
  4. VX-950 (TELAPREVIR) [Suspect]
     Dosage: 1000 MG, QD
     Route: 048
     Dates: start: 20120810, end: 20120902
  5. REBETOL [Suspect]
     Indication: CHRONIC HEPATITIS C
     Dosage: 400 MG, QD
     Route: 048
     Dates: start: 20120710, end: 20120715
  6. REBETOL [Suspect]
     Dosage: 600 MG, QD
     Route: 048
     Dates: start: 20120716, end: 20120723
  7. REBETOL [Suspect]
     Dosage: 400 MG, QD
     Route: 048
     Dates: start: 20120724, end: 20120724
  8. REBETOL [Suspect]
     Dosage: 200 MG, QD
     Route: 048
     Dates: start: 20120725, end: 20120917
  9. REBETOL [Suspect]
     Dosage: 400 MG, QD
     Route: 048
     Dates: start: 20120918, end: 20120930
  10. REBETOL [Suspect]
     Dosage: 200/400 MG, ON ALTERNATE DAYS
     Route: 048
     Dates: start: 20121001, end: 20121008
  11. REBETOL [Suspect]
     Dosage: 200 MG, QD
     Route: 048
     Dates: start: 20121009, end: 20121028
  12. REBETOL [Suspect]
     Dosage: 400MG TUESDAY, THURSDAY, SATURDAY; 200MG MONDAY, WEDNESDAY, FRIDAY, SUNDAY
     Route: 048
     Dates: start: 20121029, end: 20121111
  13. REBETOL [Suspect]
     Dosage: 400 MG, QD
     Route: 048
     Dates: start: 20121112, end: 20121125
  14. REBETOL [Suspect]
     Dosage: 200MG TUESDAY, THURSDAY, SATURDAY; 400MG MONDAY, WEDNESDAY, FRIDAY, SUNDAY
     Route: 048
     Dates: start: 20121126, end: 20121225
  15. PEGINTRON [Suspect]
     Indication: CHRONIC HEPATITIS C
     Dosage: 1.44 ?G/KG, QW
     Route: 058
     Dates: start: 20120710
  16. PRAVASTAN [Concomitant]
     Dosage: 5 MG, QD
     Route: 048
     Dates: start: 20120710, end: 20121221
  17. SENNOSIDE [Concomitant]
     Dosage: 12 MG, QD
     Route: 048
     Dates: start: 20120711, end: 20130303
  18. NOVAMIN [Concomitant]
     Dosage: 4 DF, QD
     Route: 048
     Dates: start: 20120713
  19. RESTAMIN [Concomitant]
     Dosage: UNK UNK, QD/PRN
     Route: 061
     Dates: start: 20120719, end: 20120724
  20. ALLEGRA [Concomitant]
     Dosage: 2 DF, QD
     Route: 048
     Dates: start: 20120720

REACTIONS (1)
  - Syncope [Recovered/Resolved]
